FAERS Safety Report 21178668 (Version 1)
Quarter: 2022Q3

REPORT INFORMATION
  Report Type: Spontaneous
  Country: US (occurrence: None)
  Receive Date: 20220804
  Receipt Date: 20220804
  Transmission Date: 20221027
  Serious: No
  Sender: FDA-Public Use
  Company Number: None

PATIENT
  Sex: Female

DRUGS (1)
  1. MAKENA [Suspect]
     Active Substance: HYDROXYPROGESTERONE CAPROATE
     Indication: Prophylaxis
     Dosage: OTHER QUANTITY : 275MG/1.1M ;?FREQUENCY : WEEKLY;?
     Route: 058
     Dates: start: 20220616

REACTIONS (2)
  - Adverse drug reaction [None]
  - Maternal exposure timing unspecified [None]
